FAERS Safety Report 8803985 (Version 4)
Quarter: 2014Q1

REPORT INFORMATION
  Report Type: Spontaneous
  Country: US (occurrence: US)
  Receive Date: 20120924
  Receipt Date: 20140128
  Transmission Date: 20141002
  Serious: No
  Sender: FDA-Public Use
  Company Number: US-PFIZER INC-2012231243

PATIENT
  Age: 62 Year
  Sex: Female
  Weight: 79.37 kg

DRUGS (2)
  1. XALATAN [Suspect]
     Indication: INTRAOCULAR PRESSURE TEST ABNORMAL
     Dosage: 1 DROP IN EACH EYE DAILY
     Route: 047
     Dates: start: 2011
  2. XALATAN [Suspect]
     Dosage: 1 DROP IN EACH EYE DAILY
     Route: 047
     Dates: start: 201311

REACTIONS (3)
  - Intraocular pressure increased [Unknown]
  - Product quality issue [Unknown]
  - Dry eye [Not Recovered/Not Resolved]
